FAERS Safety Report 5205075-8 (Version None)
Quarter: 2007Q1

REPORT INFORMATION
  Report Type: 
  Country: None (occurrence: None)
  Receive Date: 20070110
  Receipt Date: 20061020
  Transmission Date: 20070707
  Serious: No
  Sender: FDA-Public Use
  Company Number: US-BRISTOL-MYERS SQUIBB COMPANY-13549423

PATIENT
  Age: 76 Year
  Sex: Male
  Weight: 100 kg

DRUGS (6)
  1. ABILIFY [Suspect]
     Indication: DEPRESSION
     Dates: start: 20061017
  2. COUMADIN [Concomitant]
  3. LEXAPRO [Concomitant]
  4. CYMBALTA [Concomitant]
  5. ALPRAZOLAM [Concomitant]
  6. BLOOD PRESSURE MEDICATION [Concomitant]

REACTIONS (2)
  - DYSKINESIA [None]
  - TREMOR [None]
